FAERS Safety Report 5734773-2 (Version None)
Quarter: 2008Q2

REPORT INFORMATION
  Report Type: 
  Country: None (occurrence: None)
  Receive Date: 20080512
  Receipt Date: 20080508
  Transmission Date: 20081010
  Serious: Yes (Other)
  Sender: FDA-Public Use
  Company Number: PHNU2008DE01775

PATIENT
  Sex: Male

DRUGS (1)
  1. CLOZAPINE [Suspect]
     Dosage: UNK, UNK
     Route: 048
     Dates: start: 19880101, end: 20080301

REACTIONS (3)
  - BRUGADA SYNDROME [None]
  - IMPLANTABLE DEFIBRILLATOR INSERTION [None]
  - LOSS OF CONSCIOUSNESS [None]
